FAERS Safety Report 4551717-X (Version None)
Quarter: 2005Q1

REPORT INFORMATION
  Report Type: 
  Country: None (occurrence: None)
  Receive Date: 20050113
  Receipt Date: 20041229
  Transmission Date: 20050727
  Serious: Yes (Hospitalization)
  Sender: FDA-Public Use
  Company Number: FR-JNJFOC-20050101830

PATIENT
  Age: 82 Year
  Sex: Male

DRUGS (13)
  1. IXPRIM [Suspect]
     Indication: DRUG USE FOR UNKNOWN INDICATION
     Route: 049
  2. VIOXX [Suspect]
     Indication: DRUG USE FOR UNKNOWN INDICATION
     Route: 049
  3. ZOXON [Suspect]
     Indication: DRUG USE FOR UNKNOWN INDICATION
     Route: 049
  4. ATARAX [Suspect]
     Indication: DRUG USE FOR UNKNOWN INDICATION
     Route: 049
  5. CORDARONE [Suspect]
     Indication: DRUG USE FOR UNKNOWN INDICATION
     Route: 042
  6. SERC [Suspect]
     Indication: DRUG USE FOR UNKNOWN INDICATION
     Route: 049
  7. FOSINOPRIL SODIUM [Concomitant]
     Route: 049
  8. CATAPRES [Concomitant]
     Route: 049
  9. AMLOR [Concomitant]
     Route: 049
  10. PRAVASTATIN [Concomitant]
     Route: 065
  11. HAVLANE [Concomitant]
     Route: 065
  12. SINTROM [Concomitant]
     Route: 065
  13. KALEORID [Concomitant]
     Route: 065

REACTIONS (2)
  - HYPOTHYROIDISM [None]
  - RASH PAPULAR [None]
